FAERS Safety Report 9714926 (Version 1)
Quarter: 2013Q4

REPORT INFORMATION
  Report Type: Spontaneous
  Country: GB (occurrence: None)
  Receive Date: 20131125
  Receipt Date: 20131125
  Transmission Date: 20140711
  Serious: Yes (Other)
  Sender: FDA-Public Use
  Company Number: SYM-2013-10506

PATIENT
  Age: 70 Year
  Sex: Male
  Weight: 63.5 kg

DRUGS (5)
  1. TASMAR [Suspect]
     Indication: PARKINSON^S DISEASE
     Route: 048
     Dates: start: 20130805, end: 20130809
  2. REQUIP(ROPINIROLE HYDROCHLORIDE) (ROPINIROLE HYDROCHLORIDE) [Concomitant]
  3. CO-CARELDOPA (SINEMET) (LEVODOPA, CARBIDOPA) [Concomitant]
  4. OMEPRAZOLE (OMEPRAZOLE) (OMEPRAZOLE) [Concomitant]
  5. CO-ENZYME Q10 (UBIDECARENONE) (UBIDECARENONE) [Concomitant]

REACTIONS (2)
  - Liver disorder [None]
  - Jaundice [None]
